FAERS Safety Report 21572915 (Version 1)
Quarter: 2022Q4

REPORT INFORMATION
  Report Type: Spontaneous
  Country: US (occurrence: US)
  Receive Date: 20221109
  Receipt Date: 20221109
  Transmission Date: 20230112
  Serious: Yes (Death)
  Sender: FDA-Public Use
  Company Number: US-PFIZER INC-202200356610

PATIENT
  Age: 19 Year
  Sex: Male
  Weight: 79.38 kg

DRUGS (2)
  1. IBRANCE [Suspect]
     Active Substance: PALBOCICLIB
     Indication: Ewing^s sarcoma
     Dosage: 125 MG, CYCLIC (TAKING IBRANCE ON DAYS 1-14 FOR A 21 DAY SUPPLY)
     Route: 048
     Dates: start: 20220404
  2. MESNEX [Concomitant]
     Active Substance: MESNA
     Dosage: 400 MG, AS NEEDED (400MG TABLET FOUR TABLETS ONCE AS NEEDED AFTER COMPLETION OF CHEMO)
     Dates: start: 20220712

REACTIONS (2)
  - Death [Fatal]
  - Off label use [Unknown]

NARRATIVE: CASE EVENT DATE: 20220404
